FAERS Safety Report 25851366 (Version 1)
Quarter: 2025Q3

REPORT INFORMATION
  Report Type: Spontaneous
  Country: US (occurrence: None)
  Receive Date: 20250925
  Receipt Date: 20250925
  Transmission Date: 20251020
  Serious: Yes (Other)
  Sender: FDA-CTU
  Company Number: None

PATIENT
  Age: 48 Year
  Sex: Female
  Weight: 64.8 kg

DRUGS (1)
  1. HUMIRA [Suspect]
     Active Substance: ADALIMUMAB
     Indication: Psoriatic arthropathy
     Route: 058
     Dates: start: 20250623

REACTIONS (5)
  - Injection site erythema [None]
  - Injection site pain [None]
  - Injection site pruritus [None]
  - Product temperature excursion issue [None]
  - Product storage error [None]

NARRATIVE: CASE EVENT DATE: 20250924
